FAERS Safety Report 6013836-0 (Version None)
Quarter: 2008Q4

REPORT INFORMATION
  Report Type: 
  Country: None (occurrence: None)
  Receive Date: 20081219
  Receipt Date: 20081215
  Transmission Date: 20090506
  Serious: Yes (Life-Threatening, Hospitalization)
  Sender: FDA-Public Use
  Company Number: CA-PFIZER INC-2008154792

PATIENT

DRUGS (7)
  1. EXEMESTANE [Suspect]
     Indication: BREAST CANCER
     Dosage: 25 MG, 1X/DAY
     Route: 048
     Dates: start: 20061127, end: 20081120
  2. AMLODIPINE BESILATE [Concomitant]
  3. BUPRENORPHINE [Concomitant]
  4. DILTIAZEM HYDROCHLORIDE [Concomitant]
  5. NAPROXEN SODIUM [Concomitant]
  6. RISEDRONATE SODIUM [Concomitant]
  7. TELMISARTAN [Concomitant]

REACTIONS (2)
  - CHEST PAIN [None]
  - PULMONARY EMBOLISM [None]
